FAERS Safety Report 15374948 (Version 4)
Quarter: 2018Q4

REPORT INFORMATION
  Report Type: Spontaneous
  Country: JP (occurrence: JP)
  Receive Date: 20180912
  Receipt Date: 20181217
  Transmission Date: 20190204
  Serious: Yes (Death, Hospitalization, Other)
  Sender: FDA-Public Use
  Company Number: JP-SA-2018SA228280

PATIENT
  Age: 73 Year
  Sex: Male
  Weight: 61 kg

DRUGS (17)
  1. ELPLAT [Suspect]
     Active Substance: OXALIPLATIN
     Dosage: 140 MG, QD
     Route: 041
     Dates: start: 20160725, end: 20160725
  2. BEVACIZUMAB. [Suspect]
     Active Substance: BEVACIZUMAB
     Indication: COLON CANCER
     Dosage: INJECTION
     Dates: start: 20170725, end: 20170725
  3. ELPLAT [Suspect]
     Active Substance: OXALIPLATIN
     Indication: COLON CANCER
     Dosage: 140 MG, QD
     Route: 041
     Dates: start: 20160823, end: 20160823
  4. LEVOFOLINATE CALCIUM [Suspect]
     Active Substance: LEVOLEUCOVORIN CALCIUM
     Indication: COLON CANCER
     Dosage: INJECTION
     Dates: start: 20160823, end: 20170726
  5. VECTIBIX [Concomitant]
     Active Substance: PANITUMUMAB
     Dosage: UNK
     Dates: start: 20170315, end: 20170519
  6. OXIFAST [Concomitant]
     Active Substance: OXYCODONE
     Dosage: UNK
     Dates: start: 20180329
  7. ELPLAT [Suspect]
     Active Substance: OXALIPLATIN
     Dosage: 140 MG, QD
     Route: 041
     Dates: start: 20161004, end: 20161004
  8. ELPLAT [Suspect]
     Active Substance: OXALIPLATIN
     Dosage: 140 MG, QD
     Route: 041
     Dates: start: 20161018, end: 20161018
  9. ELPLAT [Suspect]
     Active Substance: OXALIPLATIN
     Dosage: 140 MG, QD
     Route: 041
     Dates: start: 20181101, end: 20181101
  10. IRINOTECAN HYDROCHLORIDE. [Concomitant]
     Active Substance: IRINOTECAN HYDROCHLORIDE
     Dosage: UNK
     Dates: start: 20161130, end: 20170519
  11. ONETRAM [Concomitant]
     Active Substance: TRAMADOL HYDROCHLORIDE
     Dosage: UNK
     Dates: start: 20171209
  12. FENTOS [Concomitant]
     Active Substance: FENTANYL
     Dosage: UNK
     Dates: start: 20180319
  13. ELPLAT [Suspect]
     Active Substance: OXALIPLATIN
     Dosage: 140 MG, QD
     Route: 041
     Dates: start: 20160920, end: 20160920
  14. FLUOROURACIL. [Suspect]
     Active Substance: FLUOROURACIL
     Indication: COLON CANCER
     Dosage: UNK
     Dates: start: 20160823, end: 20170726
  15. ELPLAT [Suspect]
     Active Substance: OXALIPLATIN
     Dosage: 140 MG, QD
     Route: 041
     Dates: start: 20160906, end: 20160906
  16. LONSURF [Concomitant]
     Active Substance: TIPIRACIL HYDROCHLORIDE\TRIFLURIDINE
     Dosage: UNK
     Dates: start: 20171117, end: 20180110
  17. TRAMAL [Concomitant]
     Active Substance: TRAMADOL
     Dosage: UNK
     Route: 048
     Dates: start: 20171209

REACTIONS (6)
  - White blood cell morphology abnormal [Unknown]
  - Stomatitis [Unknown]
  - Pneumonia [Unknown]
  - Neutropenia [Unknown]
  - Hypophagia [Unknown]
  - Acute myeloid leukaemia [Fatal]

NARRATIVE: CASE EVENT DATE: 20170821
